FAERS Safety Report 9896512 (Version 1)
Quarter: 2014Q1

REPORT INFORMATION
  Report Type: Spontaneous
  Country: US (occurrence: US)
  Receive Date: 20140213
  Receipt Date: 20140213
  Transmission Date: 20141002
  Serious: No
  Sender: FDA-Public Use
  Company Number: US-BRISTOL-MYERS SQUIBB COMPANY-18849059

PATIENT
  Age: 14 Year
  Sex: Female
  Weight: 66 kg

DRUGS (1)
  1. ORENCIA FOR INJ [Suspect]
     Indication: JUVENILE IDIOPATHIC ARTHRITIS
     Dosage: LAST INF:23APR2013
     Route: 042
     Dates: start: 201008

REACTIONS (2)
  - Urticaria [Recovered/Resolved]
  - Injection site pain [Unknown]
